FAERS Safety Report 20381068 (Version 1)
Quarter: 2022Q1

REPORT INFORMATION
  Report Type: Spontaneous
  Country: US (occurrence: US)
  Receive Date: 20220127
  Receipt Date: 20220127
  Transmission Date: 20220424
  Serious: Yes (Hospitalization, Other)
  Sender: FDA-Public Use
  Company Number: US-BoehringerIngelheim-2022-BI-108968

PATIENT
  Age: 66 Year
  Sex: Male

DRUGS (1)
  1. PRADAXA [Suspect]
     Active Substance: DABIGATRAN ETEXILATE MESYLATE
     Indication: Product used for unknown indication
     Route: 048
     Dates: start: 20120801

REACTIONS (5)
  - Cardiac failure congestive [Unknown]
  - Localised infection [Unknown]
  - Blood test abnormal [Unknown]
  - Dyspnoea [Unknown]
  - Localised infection [Unknown]

NARRATIVE: CASE EVENT DATE: 20210401
